FAERS Safety Report 5204836-9 (Version None)
Quarter: 2007Q1

REPORT INFORMATION
  Report Type: 
  Country: None (occurrence: None)
  Receive Date: 20070110
  Receipt Date: 20060801
  Transmission Date: 20070707
  Serious: No
  Sender: FDA-Public Use
  Company Number: US-BRISTOL-MYERS SQUIBB COMPANY-13462551

PATIENT
  Age: 38 Year
  Sex: Male
  Weight: 79 kg

DRUGS (5)
  1. ABILIFY [Suspect]
     Indication: BIPOLAR DISORDER
     Route: 048
     Dates: start: 20060731
  2. ALTACE [Concomitant]
  3. XANAX [Concomitant]
     Indication: ANXIETY
  4. LITHIUM CARBONATE [Concomitant]
  5. TRILEPTAL [Concomitant]
     Dosage: THE 31-JUL-2006 BEDTIME DOSE WAS CHANGED TO 300 MG

REACTIONS (2)
  - DIZZINESS [None]
  - SYNCOPE [None]
